FAERS Safety Report 12375119 (Version 1)
Quarter: 2016Q2

REPORT INFORMATION
  Report Type: Spontaneous
  Country: US (occurrence: None)
  Receive Date: 20160516
  Receipt Date: 20160516
  Transmission Date: 20160815
  Serious: Yes (Other)
  Sender: FDA-Public Use
  Company Number: None

PATIENT
  Age: 53 Year
  Sex: Male
  Weight: 65.77 kg

DRUGS (5)
  1. OXYCONTINE [Concomitant]
  2. ACTIQ [Concomitant]
     Active Substance: FENTANYL CITRATE
  3. MOVANTIK [Suspect]
     Active Substance: NALOXEGOL OXALATE
     Indication: PROPHYLAXIS
     Dosage: 30 TABLET(S) ONCE A DAY TAKEN BY MOUTH
     Route: 048
  4. ZANAFLEX [Concomitant]
     Active Substance: TIZANIDINE HYDROCHLORIDE
  5. BENADRYL+D [Concomitant]

REACTIONS (12)
  - Pain [None]
  - Hyperhidrosis [None]
  - Drug withdrawal syndrome [None]
  - Anal incontinence [None]
  - Gastrointestinal pain [None]
  - Muscle spasms [None]
  - Malaise [None]
  - Vomiting [None]
  - Pruritus [None]
  - Dyspnoea [None]
  - Asthenia [None]
  - Hypersensitivity [None]

NARRATIVE: CASE EVENT DATE: 20160511
